FAERS Safety Report 17148967 (Version 2)
Quarter: 2020Q1

REPORT INFORMATION
  Report Type: Spontaneous
  Country: JP (occurrence: JP)
  Receive Date: 20191213
  Receipt Date: 20200103
  Transmission Date: 20200409
  Serious: Yes (Other)
  Sender: FDA-Public Use
  Company Number: JP-ROCHE-2496270

PATIENT
  Age: 10 Decade

DRUGS (1)
  1. BONVIVA [Suspect]
     Active Substance: IBANDRONATE SODIUM
     Indication: OSTEOPOROSIS
     Route: 042
     Dates: start: 20140221, end: 20191025

REACTIONS (2)
  - Osteomyelitis [Not Recovered/Not Resolved]
  - Haemodialysis [Unknown]

NARRATIVE: CASE EVENT DATE: 2019
